FAERS Safety Report 9417103 (Version 2)
Quarter: 2013Q4

REPORT INFORMATION
  Report Type: Spontaneous
  Country: US (occurrence: US)
  Receive Date: 20130724
  Receipt Date: 20131021
  Transmission Date: 20140711
  Serious: Yes (Other)
  Sender: FDA-Public Use
  Company Number: US-JNJFOC-20130710077

PATIENT
  Age: 64 Year
  Sex: Male

DRUGS (6)
  1. XARELTO [Suspect]
     Indication: DEEP VEIN THROMBOSIS
     Route: 048
     Dates: start: 20130617, end: 20130627
  2. XARELTO [Suspect]
     Indication: PULMONARY EMBOLISM
     Route: 048
     Dates: start: 20130617, end: 20130627
  3. LIPITOR [Concomitant]
     Indication: HYPERLIPIDAEMIA
     Route: 065
     Dates: start: 200907
  4. METOPROLOL [Concomitant]
     Indication: ARRHYTHMIA
     Route: 065
     Dates: start: 201303
  5. METOPROLOL [Concomitant]
     Indication: CORONARY ARTERY DISEASE
     Route: 065
     Dates: start: 201303
  6. IMDUR [Concomitant]
     Indication: GOUT
     Route: 065
     Dates: start: 20130329

REACTIONS (1)
  - Leukopenia [Recovering/Resolving]
